FAERS Safety Report 9029139 (Version 1)
Quarter: 2013Q1

REPORT INFORMATION
  Report Type: Spontaneous
  Country: FR (occurrence: FR)
  Receive Date: 20130124
  Receipt Date: 20130124
  Transmission Date: 20140127
  Serious: Yes (Hospitalization)
  Sender: FDA-Public Use
  Company Number: FR-UCBSA-075930

PATIENT
  Age: 87 Year
  Sex: Male

DRUGS (7)
  1. KEPPRA [Suspect]
     Indication: EPILEPSY
     Route: 048
     Dates: start: 201109, end: 20121204
  2. KEPPRA [Suspect]
     Indication: EPILEPSY
     Dosage: UNKNOWN DOSE
     Dates: start: 20121210
  3. CRESTOR [Concomitant]
     Dosage: UNKNOWN DOSE
  4. LODOZ [Concomitant]
     Dosage: UNKNOWN DOSE
  5. KARDEGIC [Concomitant]
     Dosage: UNKNOWN DOSE
  6. REMINYL [Concomitant]
     Dosage: UNKNOWN DOSE
  7. DEPAKINE [Concomitant]
     Dates: start: 20121218

REACTIONS (5)
  - Convulsion [Recovered/Resolved]
  - Disturbance in attention [Unknown]
  - Somnolence [Unknown]
  - Extrapyramidal disorder [Unknown]
  - Dysphagia [Unknown]
